FAERS Safety Report 6313304-2 (Version None)
Quarter: 2009Q3

REPORT INFORMATION
  Report Type: 
  Country: None (occurrence: None)
  Receive Date: 20090818
  Receipt Date: 20090811
  Transmission Date: 20100115
  Serious: Yes (Other)
  Sender: FDA-Public Use
  Company Number: A0801639A

PATIENT
  Age: 60 Year
  Sex: Male

DRUGS (4)
  1. ADVAIR HFA [Suspect]
     Indication: ASTHMA
     Dosage: 1PUFF TWICE PER DAY
     Route: 055
     Dates: start: 20090721
  2. ALBUTEROL [Concomitant]
  3. PRILOSEC [Concomitant]
  4. LISINOPRIL [Concomitant]

REACTIONS (8)
  - CONSTIPATION [None]
  - DIZZINESS [None]
  - FEELING JITTERY [None]
  - FLATULENCE [None]
  - GASTRIC DISORDER [None]
  - GASTRIC ULCER [None]
  - HEART RATE INCREASED [None]
  - INSOMNIA [None]
